FAERS Safety Report 20906812 (Version 4)
Quarter: 2022Q2

REPORT INFORMATION
  Report Type: Spontaneous
  Country: TH (occurrence: TH)
  Receive Date: 20220602
  Receipt Date: 20220610
  Transmission Date: 20220721
  Serious: Yes (Other)
  Sender: FDA-Public Use
  Company Number: TH-NOVARTISPH-NVSC2022TH122137

PATIENT
  Age: 43 Year
  Sex: Female

DRUGS (76)
  1. ELTROMBOPAG OLAMINE [Suspect]
     Active Substance: ELTROMBOPAG OLAMINE
     Indication: Immune thrombocytopenia
     Dosage: 1 DOSAGE FORM, QD
     Route: 065
     Dates: start: 20171104
  2. ELTROMBOPAG OLAMINE [Suspect]
     Active Substance: ELTROMBOPAG OLAMINE
     Dosage: 1 DOSAGE FORM, QD
     Route: 065
     Dates: start: 20171120
  3. ELTROMBOPAG OLAMINE [Suspect]
     Active Substance: ELTROMBOPAG OLAMINE
     Dosage: 2 DOSAGE FORM, QD
     Route: 065
     Dates: start: 20180115
  4. ELTROMBOPAG OLAMINE [Suspect]
     Active Substance: ELTROMBOPAG OLAMINE
     Dosage: 2 DOSAGE FORM, QD
     Route: 065
     Dates: start: 20180409
  5. ELTROMBOPAG OLAMINE [Suspect]
     Active Substance: ELTROMBOPAG OLAMINE
     Dosage: 2 DOSAGE FORM, QD
     Route: 065
     Dates: start: 20180507
  6. ELTROMBOPAG OLAMINE [Suspect]
     Active Substance: ELTROMBOPAG OLAMINE
     Dosage: 2 DOSAGE FORM, QD
     Route: 065
     Dates: start: 20181126
  7. ELTROMBOPAG OLAMINE [Suspect]
     Active Substance: ELTROMBOPAG OLAMINE
     Dosage: 2 DOSAGE FORM, QD
     Route: 065
     Dates: start: 20181221
  8. ELTROMBOPAG OLAMINE [Suspect]
     Active Substance: ELTROMBOPAG OLAMINE
     Dosage: 2 DOSAGE FORM, QD
     Route: 065
     Dates: start: 20190102
  9. ELTROMBOPAG OLAMINE [Suspect]
     Active Substance: ELTROMBOPAG OLAMINE
     Dosage: 2 DOSAGE FORM, QD
     Route: 065
     Dates: start: 20190118
  10. ELTROMBOPAG OLAMINE [Suspect]
     Active Substance: ELTROMBOPAG OLAMINE
     Dosage: 2 DOSAGE FORM, QD
     Route: 065
     Dates: start: 20190215
  11. ELTROMBOPAG OLAMINE [Suspect]
     Active Substance: ELTROMBOPAG OLAMINE
     Dosage: 2 DOSAGE FORM, QD
     Route: 065
     Dates: start: 20190411
  12. ELTROMBOPAG OLAMINE [Suspect]
     Active Substance: ELTROMBOPAG OLAMINE
     Dosage: 2 DOSAGE FORM, QD
     Route: 065
     Dates: start: 20190811
  13. ELTROMBOPAG OLAMINE [Suspect]
     Active Substance: ELTROMBOPAG OLAMINE
     Dosage: 2 DOSAGE FORM, QD
     Route: 065
     Dates: start: 20190830
  14. ELTROMBOPAG OLAMINE [Suspect]
     Active Substance: ELTROMBOPAG OLAMINE
     Dosage: 2 DOSAGE FORM, QD
     Route: 065
     Dates: start: 20200402
  15. ELTROMBOPAG OLAMINE [Suspect]
     Active Substance: ELTROMBOPAG OLAMINE
     Dosage: 2 DOSAGE FORM, QD
     Route: 065
     Dates: start: 20211218
  16. ELTROMBOPAG OLAMINE [Suspect]
     Active Substance: ELTROMBOPAG OLAMINE
     Dosage: 1 DOSAGE FORM, QD
     Route: 065
     Dates: start: 20200630, end: 20210301
  17. PREDNISOLONE [Concomitant]
     Active Substance: PREDNISOLONE
     Indication: Product used for unknown indication
     Dosage: UNK (6X2)
     Route: 065
     Dates: start: 20170926
  18. PREDNISOLONE [Concomitant]
     Active Substance: PREDNISOLONE
     Dosage: UNK (5X2)
     Route: 065
     Dates: start: 20171018
  19. PREDNISOLONE [Concomitant]
     Active Substance: PREDNISOLONE
     Dosage: UNK (4X2)
     Route: 065
     Dates: start: 20171104
  20. PREDNISOLONE [Concomitant]
     Active Substance: PREDNISOLONE
     Dosage: UNK (5X1)
     Route: 065
     Dates: start: 20171120
  21. PREDNISOLONE [Concomitant]
     Active Substance: PREDNISOLONE
     Dosage: UNK (5X1)
     Route: 065
     Dates: start: 20171218
  22. PREDNISOLONE [Concomitant]
     Active Substance: PREDNISOLONE
     Dosage: UNK (4X1)
     Route: 065
     Dates: start: 20180115
  23. PREDNISOLONE [Concomitant]
     Active Substance: PREDNISOLONE
     Dosage: UNK (2X1)
     Route: 065
     Dates: start: 20180409
  24. PREDNISOLONE [Concomitant]
     Active Substance: PREDNISOLONE
     Dosage: UNK (2X1)
     Route: 065
     Dates: start: 20180507
  25. PREDNISOLONE [Concomitant]
     Active Substance: PREDNISOLONE
     Dosage: UNK (6X1)
     Route: 065
     Dates: start: 20181126
  26. PREDNISOLONE [Concomitant]
     Active Substance: PREDNISOLONE
     Dosage: UNK (5X1)
     Route: 065
     Dates: start: 20181221
  27. PREDNISOLONE [Concomitant]
     Active Substance: PREDNISOLONE
     Dosage: UNK (10X1)
     Route: 065
     Dates: start: 20190102
  28. PREDNISOLONE [Concomitant]
     Active Substance: PREDNISOLONE
     Dosage: UNK (8X1)
     Route: 065
     Dates: start: 20190118
  29. PREDNISOLONE [Concomitant]
     Active Substance: PREDNISOLONE
     Dosage: UNK (5X1)
     Route: 065
     Dates: start: 20190215
  30. PREDNISOLONE [Concomitant]
     Active Substance: PREDNISOLONE
     Dosage: UNK (2X1)
     Route: 065
     Dates: start: 20190411
  31. PREDNISOLONE [Concomitant]
     Active Substance: PREDNISOLONE
     Dosage: UNK (10X1)
     Route: 065
     Dates: start: 20190811
  32. PREDNISOLONE [Concomitant]
     Active Substance: PREDNISOLONE
     Dosage: UNK (6X1)
     Route: 065
     Dates: start: 20190830
  33. PREDNISOLONE [Concomitant]
     Active Substance: PREDNISOLONE
     Dosage: UNK (1X1)
     Route: 065
     Dates: start: 20200402
  34. PREDNISOLONE [Concomitant]
     Active Substance: PREDNISOLONE
     Dosage: UNK (2X1)
     Route: 065
     Dates: start: 20210401
  35. PREDNISOLONE [Concomitant]
     Active Substance: PREDNISOLONE
     Dosage: UNK (6X1)
     Route: 065
     Dates: start: 20211229
  36. PREDNISOLONE [Concomitant]
     Active Substance: PREDNISOLONE
     Dosage: UNK (3X1)
     Route: 065
     Dates: start: 20220204
  37. PREDNISOLONE [Concomitant]
     Active Substance: PREDNISOLONE
     Dosage: UNK (3X1)
     Route: 065
     Dates: start: 20220307
  38. COLCHICINE [Concomitant]
     Active Substance: COLCHICINE
     Indication: Product used for unknown indication
     Dosage: UNK (1X2)
     Route: 065
     Dates: start: 20171018
  39. COLCHICINE [Concomitant]
     Active Substance: COLCHICINE
     Dosage: UNK (1X2)
     Route: 065
     Dates: start: 20171104
  40. COLCHICINE [Concomitant]
     Active Substance: COLCHICINE
     Dosage: UNK (1X2)
     Route: 065
     Dates: start: 20171120
  41. COLCHICINE [Concomitant]
     Active Substance: COLCHICINE
     Dosage: UNK (1X2)
     Route: 065
     Dates: start: 20171218
  42. COLCHICINE [Concomitant]
     Active Substance: COLCHICINE
     Dosage: UNK (1X2)
     Route: 065
     Dates: start: 20180115
  43. COLCHICINE [Concomitant]
     Active Substance: COLCHICINE
     Dosage: UNK (1X2)
     Route: 065
     Dates: start: 20180409
  44. COLCHICINE [Concomitant]
     Active Substance: COLCHICINE
     Dosage: UNK (1X2)
     Route: 065
     Dates: start: 20180507
  45. COLCHICINE [Concomitant]
     Active Substance: COLCHICINE
     Dosage: UNK (1X2)
     Route: 065
     Dates: start: 20181126
  46. COLCHICINE [Concomitant]
     Active Substance: COLCHICINE
     Dosage: UNK (1X2)
     Route: 065
     Dates: start: 20181221
  47. COLCHICINE [Concomitant]
     Active Substance: COLCHICINE
     Dosage: UNK (1X2)
     Route: 065
     Dates: start: 20190102
  48. COLCHICINE [Concomitant]
     Active Substance: COLCHICINE
     Dosage: UNK (1X2)
     Route: 065
     Dates: start: 20190118
  49. COLCHICINE [Concomitant]
     Active Substance: COLCHICINE
     Dosage: UNK (1X2)
     Route: 065
     Dates: start: 20190215
  50. COLCHICINE [Concomitant]
     Active Substance: COLCHICINE
     Dosage: UNK (1X2)
     Route: 065
     Dates: start: 20190411
  51. COLCHICINE [Concomitant]
     Active Substance: COLCHICINE
     Dosage: UNK (1X2)
     Route: 065
     Dates: start: 20190811
  52. COLCHICINE [Concomitant]
     Active Substance: COLCHICINE
     Dosage: UNK (1X2)
     Route: 065
     Dates: start: 20190830
  53. COLCHICINE [Concomitant]
     Active Substance: COLCHICINE
     Dosage: UNK (1X2)
     Route: 065
     Dates: start: 20200402
  54. COLCHICINE [Concomitant]
     Active Substance: COLCHICINE
     Dosage: UNK (1X1)
     Route: 065
     Dates: start: 20200630
  55. COLCHICINE [Concomitant]
     Active Substance: COLCHICINE
     Dosage: UNK (1X2)
     Route: 065
     Dates: start: 20211229
  56. COLCHICINE [Concomitant]
     Active Substance: COLCHICINE
     Dosage: UNK (1X2)
     Route: 065
     Dates: start: 20220204
  57. COLCHICINE [Concomitant]
     Active Substance: COLCHICINE
     Dosage: UNK (1X2)
     Route: 065
     Dates: start: 20220307
  58. DAPSONE [Concomitant]
     Active Substance: DAPSONE
     Indication: Product used for unknown indication
     Dosage: UNK (1X2)
     Route: 065
     Dates: start: 20171218
  59. DAPSONE [Concomitant]
     Active Substance: DAPSONE
     Dosage: UNK (1X2)
     Route: 065
     Dates: start: 20180115
  60. DAPSONE [Concomitant]
     Active Substance: DAPSONE
     Dosage: UNK (1X2)
     Route: 065
     Dates: start: 20180409
  61. DAPSONE [Concomitant]
     Active Substance: DAPSONE
     Dosage: UNK (1X2)
     Route: 065
     Dates: start: 20180507
  62. DAPSONE [Concomitant]
     Active Substance: DAPSONE
     Dosage: UNK (1X2)
     Route: 065
     Dates: start: 20181126
  63. DAPSONE [Concomitant]
     Active Substance: DAPSONE
     Dosage: UNK (1X2)
     Route: 065
     Dates: start: 20181221
  64. DAPSONE [Concomitant]
     Active Substance: DAPSONE
     Dosage: UNK (1X2)
     Route: 065
     Dates: start: 20190102
  65. DAPSONE [Concomitant]
     Active Substance: DAPSONE
     Dosage: UNK (1X2)
     Route: 065
     Dates: start: 20190118
  66. DAPSONE [Concomitant]
     Active Substance: DAPSONE
     Dosage: UNK (1X2)
     Route: 065
     Dates: start: 20190515
  67. DAPSONE [Concomitant]
     Active Substance: DAPSONE
     Dosage: UNK (1X2)
     Route: 065
     Dates: start: 20190411
  68. DAPSONE [Concomitant]
     Active Substance: DAPSONE
     Dosage: UNK (1X2)
     Route: 065
     Dates: start: 20190811
  69. DAPSONE [Concomitant]
     Active Substance: DAPSONE
     Dosage: UNK (1X2)
     Route: 065
     Dates: start: 20190830
  70. DAPSONE [Concomitant]
     Active Substance: DAPSONE
     Dosage: UNK (1X2)
     Route: 065
     Dates: start: 20200402
  71. DAPSONE [Concomitant]
     Active Substance: DAPSONE
     Dosage: UNK (1X1)
     Route: 065
     Dates: start: 20200630
  72. DAPSONE [Concomitant]
     Active Substance: DAPSONE
     Dosage: UNK (1X1)
     Route: 065
     Dates: start: 20210401
  73. DAPSONE [Concomitant]
     Active Substance: DAPSONE
     Dosage: UNK (1X2)
     Route: 065
     Dates: start: 20211229
  74. DAPSONE [Concomitant]
     Active Substance: DAPSONE
     Dosage: UNK (1X2)
     Route: 065
     Dates: start: 20220204
  75. DAPSONE [Concomitant]
     Active Substance: DAPSONE
     Dosage: UNK (1X2)
     Route: 065
     Dates: start: 20220307
  76. DANAZOL [Concomitant]
     Active Substance: DANAZOL
     Indication: Product used for unknown indication
     Dosage: UNK (1X1)
     Route: 065
     Dates: start: 20200630

REACTIONS (4)
  - Bone tuberculosis [Unknown]
  - Influenza [Unknown]
  - Platelet count decreased [Unknown]
  - Back pain [Unknown]

NARRATIVE: CASE EVENT DATE: 20180507
